FAERS Safety Report 17246375 (Version 1)
Quarter: 2020Q1

REPORT INFORMATION
  Report Type: Spontaneous
  Country: DE (occurrence: DE)
  Receive Date: 20200108
  Receipt Date: 20200108
  Transmission Date: 20200409
  Serious: Yes (Hospitalization)
  Sender: FDA-Public Use
  Company Number: DE-PFIZER INC-2020006467

PATIENT
  Age: 88 Year
  Sex: Female

DRUGS (1)
  1. LORAZEPAM. [Suspect]
     Active Substance: LORAZEPAM
     Dosage: UNK (NK MG, 3X)

REACTIONS (3)
  - Dyspnoea [Unknown]
  - Restlessness [Unknown]
  - Product prescribing error [Unknown]
